FAERS Safety Report 23918959 (Version 2)
Quarter: 2024Q3

REPORT INFORMATION
  Report Type: Spontaneous
  Country: US (occurrence: US)
  Receive Date: 20240530
  Receipt Date: 20240723
  Transmission Date: 20241016
  Serious: No
  Sender: Haleon PLC
  Company Number: US-HALEON-2178967

PATIENT

DRUGS (2)
  1. PARODONTAX ACTIVE GUM REPAIR BREATH FRESHENER [Suspect]
     Active Substance: STANNOUS FLUORIDE
     Indication: Gingival bleeding
  2. PARODONTAX ACTIVE GUM REPAIR BREATH FRESHENER [Suspect]
     Active Substance: STANNOUS FLUORIDE
     Indication: Breath odour

REACTIONS (1)
  - Paraesthesia [Unknown]
